FAERS Safety Report 9385822 (Version 1)
Quarter: 2013Q3

REPORT INFORMATION
  Report Type: Report from Study
  Country: US (occurrence: US)
  Receive Date: 20130705
  Receipt Date: 20130705
  Transmission Date: 20140515
  Serious: Yes (Hospitalization, Other)
  Sender: FDA-Public Use
  Company Number: US-ABBOTT-13P-163-1112487-00

PATIENT
  Age: 32 Year
  Sex: Female

DRUGS (1)
  1. HUMIRA [Suspect]
     Indication: PSORIATIC ARTHROPATHY
     Dates: start: 201012, end: 201212

REACTIONS (6)
  - Asthenia [Unknown]
  - Hepatic failure [Not Recovered/Not Resolved]
  - Oedema peripheral [Unknown]
  - Disturbance in attention [Unknown]
  - Hepatitis alcoholic [Unknown]
  - Blood potassium decreased [Unknown]
